FAERS Safety Report 18913295 (Version 2)
Quarter: 2021Q1

REPORT INFORMATION
  Report Type: Spontaneous
  Country: DE (occurrence: DE)
  Receive Date: 20210219
  Receipt Date: 20210317
  Transmission Date: 20210420
  Serious: Yes (Death)
  Sender: FDA-Public Use
  Company Number: DE-009507513-2102DEU003915

PATIENT
  Age: 76 Year
  Sex: Female
  Weight: 85 kg

DRUGS (4)
  1. VELMETIA [Suspect]
     Active Substance: METFORMIN\SITAGLIPTIN
     Indication: TYPE 2 DIABETES MELLITUS
     Dosage: STRENGTH: 50/1000 (UNIT NOT PROVIDED); DOSE: 2 (UNIT NOT PROVIDED), QD
     Route: 048
     Dates: end: 20120329
  2. ATACAND [Concomitant]
     Active Substance: CANDESARTAN CILEXETIL
     Dosage: 2 (UNIT UNKNOWN), QD
     Route: 048
     Dates: end: 20120329
  3. ASS 100 [Concomitant]
     Active Substance: ASPIRIN
     Dosage: 1 (UNIT UNKNOWN), QD
     Route: 048
     Dates: end: 20120329
  4. METOHEXAL [Concomitant]
     Active Substance: METOPROLOL
     Indication: HYPERTENSION
     Dosage: DAILY DOSE: 190 MG MILLGRAM(S) EVERY DAYS, ROUTE: OCCLUSIVE DRESSINGS TECHNIQUE
     Dates: end: 20120329

REACTIONS (5)
  - Acute kidney injury [Fatal]
  - Disseminated intravascular coagulation [Fatal]
  - Hepatic function abnormal [Fatal]
  - Lactic acidosis [Fatal]
  - Respiratory failure [Fatal]

NARRATIVE: CASE EVENT DATE: 20120329
